FAERS Safety Report 10896770 (Version 1)
Quarter: 2015Q1

REPORT INFORMATION
  Report Type: Spontaneous
  Country: US (occurrence: None)
  Receive Date: 20150302
  Receipt Date: 20150302
  Transmission Date: 20150721
  Serious: Yes (Hospitalization)
  Sender: FDA-Public Use
  Company Number: None

PATIENT
  Age: 77 Year
  Sex: Male
  Weight: 66.5 kg

DRUGS (13)
  1. ASPIRIN. [Concomitant]
     Active Substance: ASPIRIN
  2. AMIODARONE [Concomitant]
     Active Substance: AMIODARONE
  3. TOPROL XL [Concomitant]
     Active Substance: METOPROLOL SUCCINATE
  4. TIOTROPIUM [Concomitant]
     Active Substance: TIOTROPIUM
  5. TICAGRELOR [Suspect]
     Active Substance: TICAGRELOR
     Indication: ACUTE MYOCARDIAL INFARCTION
     Dosage: 1 TAB
     Route: 048
     Dates: start: 20141214, end: 20150224
  6. TICAGRELOR [Suspect]
     Active Substance: TICAGRELOR
     Indication: CORONARY ARTERIAL STENT INSERTION
     Dosage: 1 TAB
     Route: 048
     Dates: start: 20141214, end: 20150224
  7. VITAMIN D [Concomitant]
     Active Substance: CHOLECALCIFEROL
  8. ALBUTEROL. [Concomitant]
     Active Substance: ALBUTEROL
  9. SALMETEROL [Concomitant]
     Active Substance: SALMETEROL
  10. CILOSTAZOL. [Concomitant]
     Active Substance: CILOSTAZOL
  11. PANTOPRAZOLE [Concomitant]
     Active Substance: PANTOPRAZOLE SODIUM
  12. LISINOPRIL. [Concomitant]
     Active Substance: LISINOPRIL
  13. FERROUS SULFATE [Concomitant]
     Active Substance: FERROUS SULFATE\FERROUS SULFATE, DRIED

REACTIONS (2)
  - Asthenia [None]
  - Dyspnoea [None]

NARRATIVE: CASE EVENT DATE: 20150223
